FAERS Safety Report 8125874-2 (Version None)
Quarter: 2012Q1

REPORT INFORMATION
  Report Type: 
  Country: None (occurrence: None)
  Receive Date: 20120209
  Receipt Date: 20120207
  Transmission Date: 20120608
  Serious: Yes (Other)
  Sender: FDA-Public Use
  Company Number: JP-PFIZER INC-2012033583

PATIENT
  Age: 83 Year
  Sex: Female

DRUGS (5)
  1. HALOPERIDOL [Concomitant]
     Indication: INSOMNIA
     Dosage: 0.75MG, DAILY
     Route: 030
     Dates: start: 20120204, end: 20120204
  2. ZOLOFT [Suspect]
     Indication: DEPRESSION
     Dosage: 25MG/DAY
     Route: 048
     Dates: start: 20110901, end: 20120204
  3. ZOLPIDEM [Concomitant]
     Indication: INSOMNIA
     Dosage: 10MG, DAILY
     Route: 048
     Dates: start: 20110517, end: 20120204
  4. DIAZEPAM [Concomitant]
     Indication: MENTAL DISORDER
     Dosage: 5MG, DAILY
     Route: 030
     Dates: start: 20120204, end: 20120204
  5. YOKUKAN-SAN [Concomitant]
     Indication: INSOMNIA
     Dosage: 2 DF, DAILY
     Route: 048
     Dates: start: 20120204

REACTIONS (1)
  - DELIRIUM [None]
